FAERS Safety Report 7517683-X (Version None)
Quarter: 2011Q2

REPORT INFORMATION
  Report Type: 
  Country: None (occurrence: None)
  Receive Date: 20110602
  Receipt Date: 20110523
  Transmission Date: 20111010
  Serious: Yes (Hospitalization)
  Sender: FDA-Public Use
  Company Number: US-BIOGENIDEC-2011BI010129

PATIENT
  Sex: Female

DRUGS (2)
  1. AVONEX [Suspect]
     Indication: MULTIPLE SCLEROSIS
     Route: 030
     Dates: start: 20100330
  2. AVONEX [Suspect]
     Route: 030
     Dates: start: 20110427

REACTIONS (6)
  - URINARY INCONTINENCE [None]
  - ARTHROPATHY [None]
  - ARTHRALGIA [None]
  - JOINT SWELLING [None]
  - ARTHRITIS BACTERIAL [None]
  - FALL [None]
